FAERS Safety Report 8484323-5 (Version None)
Quarter: 2012Q3

REPORT INFORMATION
  Report Type: 
  Country: None (occurrence: None)
  Receive Date: 20120703
  Receipt Date: 20120626
  Transmission Date: 20120928
  Serious: Yes (Other)
  Sender: FDA-Public Use
  Company Number: PHHY2012NZ055613

PATIENT
  Sex: Male

DRUGS (1)
  1. IMATINIB MESYLATE [Suspect]
     Indication: GASTROINTESTINAL STROMAL TUMOUR
     Dosage: {400MG
     Route: 048
     Dates: start: 20040101, end: 20120101

REACTIONS (2)
  - HEART VALVE INCOMPETENCE [None]
  - CARDIAC DISORDER [None]
